FAERS Safety Report 9238668 (Version 1)
Quarter: 2013Q2

REPORT INFORMATION
  Report Type: Spontaneous
  Country: US (occurrence: US)
  Receive Date: 20130418
  Receipt Date: 20130418
  Transmission Date: 20140414
  Serious: No
  Sender: FDA-Public Use
  Company Number: US-TEVA-399070USA

PATIENT
  Age: 53 Year
  Sex: Female

DRUGS (1)
  1. NUVIGIL [Suspect]
     Route: 048

REACTIONS (5)
  - Personality change [Unknown]
  - Dysphemia [Unknown]
  - Irritability [Unknown]
  - Aggression [Unknown]
  - Anxiety [Unknown]
